FAERS Safety Report 5340334-X (Version None)
Quarter: 2007Q2

REPORT INFORMATION
  Report Type: 
  Country: None (occurrence: None)
  Receive Date: 20070531
  Receipt Date: 20070510
  Transmission Date: 20071010
  Serious: Yes (Hospitalization)
  Sender: FDA-Public Use
  Company Number: JP-MERCK-0704USA01225

PATIENT
  Age: 70 Year
  Sex: Male

DRUGS (4)
  1. SINGULAIR [Suspect]
     Indication: ASTHMA
     Route: 048
     Dates: start: 20021101, end: 20040901
  2. CORTICOSTEROIDS (UNSPECIFIED) [Concomitant]
     Indication: ASTHMA
  3. THEOPHYLLINE [Concomitant]
     Indication: ASTHMA
     Route: 065
  4. TULOBUTEROL [Concomitant]
     Indication: ASTHMA
     Route: 061

REACTIONS (4)
  - ASTHMA [None]
  - COUGH [None]
  - LUNG DISORDER [None]
  - PRODUCTIVE COUGH [None]
